FAERS Safety Report 7233487-X (Version None)
Quarter: 2011Q1

REPORT INFORMATION
  Report Type: 
  Country: None (occurrence: None)
  Receive Date: 20110119
  Receipt Date: 20110106
  Transmission Date: 20110831
  Serious: Yes (Other)
  Sender: FDA-Public Use
  Company Number: ZA-ELI_LILLY_AND_COMPANY-ZA201101001617

PATIENT
  Sex: Male
  Weight: 40 kg

DRUGS (2)
  1. STRATTERA [Suspect]
     Indication: ATTENTION DEFICIT/HYPERACTIVITY DISORDER
     Dosage: 40 MG, DAILY (1/D)
     Route: 048
  2. RISPERIDONE [Concomitant]
     Indication: SLEEP DISORDER
     Dosage: 0.5 MG, EACH EVENING
     Route: 048

REACTIONS (2)
  - YAWNING [None]
  - SOMNOLENCE [None]
